FAERS Safety Report 24628314 (Version 1)
Quarter: 2024Q4

REPORT INFORMATION
  Report Type: Spontaneous
  Country: US (occurrence: US)
  Receive Date: 20241117
  Receipt Date: 20241117
  Transmission Date: 20250114
  Serious: No
  Sender: VERRICA PHARMACEUTICALS
  Company Number: US-VERRICA PHARMACEUTICALS INC.-2024VER000052

PATIENT
  Age: 2 Year
  Sex: Male

DRUGS (1)
  1. YCANTH [Suspect]
     Active Substance: CANTHARIDIN
     Indication: Molluscum contagiosum
     Dosage: UNK, SINGLE
     Route: 061
     Dates: start: 20240917

REACTIONS (2)
  - Blister rupture [Unknown]
  - Application site pain [Unknown]

NARRATIVE: CASE EVENT DATE: 20240918
